FAERS Safety Report 24351374 (Version 1)
Quarter: 2024Q3

REPORT INFORMATION
  Report Type: Spontaneous
  Country: US (occurrence: None)
  Receive Date: 20240920
  Receipt Date: 20240920
  Transmission Date: 20241017
  Serious: Yes (Hospitalization)
  Sender: Public
  Company Number: None

PATIENT
  Sex: Male

DRUGS (1)
  1. TOBRAMYCIN [Suspect]
     Active Substance: TOBRAMYCIN\TOBRAMYCIN SULFATE
     Indication: Bronchiectasis
     Dosage: DOSE/ FREQUENCY/ROUTE OF ADMINISTRATION: INHALE THE CONTENTS OF 1 AMPULE  VIA NEBULIZER 2 TIMES A D
     Route: 055
     Dates: start: 202406

REACTIONS (3)
  - Myocardial infarction [None]
  - Therapy cessation [None]
  - Palpitations [None]
